FAERS Safety Report 9186959 (Version 1)
Quarter: 2013Q1

REPORT INFORMATION
  Report Type: Spontaneous
  Country: US (occurrence: US)
  Receive Date: 20130325
  Receipt Date: 20130325
  Transmission Date: 20140127
  Serious: No
  Sender: FDA-Public Use
  Company Number: US-PFIZER INC-2013094441

PATIENT
  Age: 82 Year
  Sex: Female
  Weight: 64.4 kg

DRUGS (2)
  1. ZITHROMAX [Suspect]
     Indication: URINARY TRACT INFECTION BACTERIAL
     Dosage: UNK
     Dates: start: 20130301, end: 201303
  2. INSULIN [Concomitant]
     Indication: DIABETES MELLITUS
     Dosage: UNK

REACTIONS (2)
  - Drug effect incomplete [Unknown]
  - Photophobia [Unknown]
